FAERS Safety Report 9326100 (Version 1)
Quarter: 2013Q2

REPORT INFORMATION
  Report Type: Report from Study
  Country: CA (occurrence: CA)
  Receive Date: 20130604
  Receipt Date: 20130604
  Transmission Date: 20140414
  Serious: Yes (Hospitalization, Other)
  Sender: FDA-Public Use
  Company Number: CA-JNJFOC-20130522235

PATIENT
  Age: 34 Year
  Sex: Male
  Weight: 108 kg

DRUGS (6)
  1. REMICADE [Suspect]
     Indication: CROHN^S DISEASE
     Route: 042
     Dates: start: 20100830
  2. IMURAN [Concomitant]
     Route: 048
  3. ATIVAN [Concomitant]
     Route: 065
  4. GABAPENTIN [Concomitant]
     Route: 065
  5. DILAUDID [Concomitant]
     Route: 065
  6. OXEPAM [Concomitant]
     Route: 065

REACTIONS (5)
  - Intestinal perforation [Unknown]
  - Skin infection [Unknown]
  - Abdominal abscess [Unknown]
  - Fistula [Unknown]
  - Scar [Unknown]
